FAERS Safety Report 7880479-3 (Version None)
Quarter: 2011Q4

REPORT INFORMATION
  Report Type: 
  Country: None (occurrence: None)
  Receive Date: 20111101
  Receipt Date: 20111026
  Transmission Date: 20120403
  Serious: Yes (Other)
  Sender: FDA-Public Use
  Company Number: PHHY2010US30517

PATIENT
  Sex: Male

DRUGS (15)
  1. ALLOPURINOL [Concomitant]
     Dosage: 100 MG, BID
  2. CARTIA XT [Concomitant]
     Dosage: 180 MG, BID
  3. BISMUTH SUBSALICYLATE [Concomitant]
  4. GLEEVEC [Suspect]
     Dosage: 400 MG, DAILY
     Route: 048
     Dates: start: 20100208
  5. GLEEVEC [Suspect]
     Indication: CHRONIC MYELOID LEUKAEMIA
     Dosage: 400 MG, UNK
     Route: 048
  6. PROTONIX [Suspect]
  7. ZANTAC [Suspect]
  8. COLCHICINE [Concomitant]
     Dosage: 0.03 MG, QD
  9. ALKA-SELTZER [Concomitant]
  10. WARFARIN [Concomitant]
  11. GAS-X [Concomitant]
  12. PRILOSEC [Suspect]
     Dosage: UNK
     Dates: start: 20091101
  13. METOPROLOL TARTRATE [Concomitant]
  14. METFORMIN HCL [Concomitant]
     Dosage: 500 MG, UNK
  15. LASIX [Concomitant]
     Dosage: 40 MG, QD

REACTIONS (7)
  - DIABETES MELLITUS [None]
  - ABDOMINAL PAIN UPPER [None]
  - IMPAIRED GASTRIC EMPTYING [None]
  - GASTROOESOPHAGEAL REFLUX DISEASE [None]
  - PANCREATITIS [None]
  - NAUSEA [None]
  - GOUT [None]
